FAERS Safety Report 21925844 (Version 1)
Quarter: 2023Q1

REPORT INFORMATION
  Report Type: Spontaneous
  Country: US (occurrence: None)
  Receive Date: 20230128
  Receipt Date: 20230128
  Transmission Date: 20230418
  Serious: Yes (Disabling, Other)
  Sender: FDA-Public Use
  Company Number: None

PATIENT
  Age: 47 Year
  Sex: Male
  Weight: 78.3 kg

DRUGS (5)
  1. .DELTA.9-TETRAHYDROCANNABINOL\CANNABIDIOL\HERBALS [Suspect]
     Active Substance: .DELTA.9-TETRAHYDROCANNABINOL\CANNABIDIOL\HERBALS
     Indication: Back injury
     Dosage: OTHER QUANTITY : 5 DISPENSARY AIR  N;?FREQUENCY : DAILY;?
     Route: 055
     Dates: start: 20230127, end: 20230128
  2. .DELTA.9-TETRAHYDROCANNABINOL\CANNABIDIOL\HERBALS [Suspect]
     Active Substance: .DELTA.9-TETRAHYDROCANNABINOL\CANNABIDIOL\HERBALS
     Indication: Hip fracture
  3. tegrotal [Concomitant]
  4. VITAMIN C [Concomitant]
     Active Substance: ASCORBIC ACID
  5. FOLIC ACID [Concomitant]
     Active Substance: FOLIC ACID

REACTIONS (11)
  - Underweight [None]
  - Chest discomfort [None]
  - Hypoaesthesia [None]
  - Insomnia [None]
  - Dyspnoea [None]
  - Pharyngeal swelling [None]
  - Cerebral disorder [None]
  - Abdominal pain upper [None]
  - Back pain [None]
  - Headache [None]
  - Cardiac disorder [None]

NARRATIVE: CASE EVENT DATE: 20230127
